FAERS Safety Report 24873903 (Version 1)
Quarter: 2025Q1

REPORT INFORMATION
  Report Type: Spontaneous
  Country: GB (occurrence: GB)
  Receive Date: 20250122
  Receipt Date: 20250122
  Transmission Date: 20250409
  Serious: Yes (Hospitalization)
  Sender: MYLAN
  Company Number: GB-MYLANLABS-2025M1002334

PATIENT
  Sex: Male

DRUGS (1)
  1. CLOZARIL [Suspect]
     Active Substance: CLOZAPINE
     Indication: Schizophrenia
     Route: 048
     Dates: start: 20160908

REACTIONS (5)
  - Psoriasis [Unknown]
  - Malaise [Unknown]
  - Neutrophilia [Unknown]
  - Leukocytosis [Unknown]
  - Therapy interrupted [Unknown]
